FAERS Safety Report 16067212 (Version 1)
Quarter: 2019Q1

REPORT INFORMATION
  Report Type: Spontaneous
  Country: US (occurrence: US)
  Receive Date: 20190313
  Receipt Date: 20190313
  Transmission Date: 20190418
  Serious: Yes (Hospitalization, Other)
  Sender: FDA-Public Use
  Company Number: US-ELI_LILLY_AND_COMPANY-US201903001031

PATIENT
  Sex: Male

DRUGS (2)
  1. HUMALOG [Suspect]
     Active Substance: INSULIN LISPRO
     Indication: TYPE 1 DIABETES MELLITUS
     Dosage: UNK, UNKNOWN
     Route: 065
  2. HUMALOG [Suspect]
     Active Substance: INSULIN LISPRO
     Dosage: UNK, UNKNOWN
     Route: 065

REACTIONS (10)
  - Confusional state [Unknown]
  - Neoplasm malignant [Unknown]
  - Blood ketone body increased [Unknown]
  - Hypertension [Unknown]
  - Glycosylated haemoglobin increased [Unknown]
  - Product dose omission [Unknown]
  - Diabetes mellitus inadequate control [Unknown]
  - Wrong patient received product [Unknown]
  - Blood glucose increased [Unknown]
  - Cardiac disorder [Unknown]

NARRATIVE: CASE EVENT DATE: 2011
